FAERS Safety Report 8365016-1 (Version None)
Quarter: 2012Q2

REPORT INFORMATION
  Report Type: 
  Country: None (occurrence: None)
  Receive Date: 20120516
  Receipt Date: 20120510
  Transmission Date: 20120825
  Serious: Yes (Hospitalization, Disabling)
  Sender: FDA-Public Use
  Company Number: FR-GLAXOSMITHKLINE-B0396378A

PATIENT
  Sex: Male
  Weight: 65.6 kg

DRUGS (5)
  1. LAMICTAL [Suspect]
     Indication: EPILEPSY
     Route: 048
     Dates: start: 20050501, end: 20050711
  2. KETOPROFEN [Concomitant]
     Indication: PRODUCT USED FOR UNKNOWN INDICATION
     Dosage: 150MG TWICE PER DAY
     Route: 065
     Dates: start: 20050520
  3. ANTIBIOTICS [Concomitant]
     Route: 065
     Dates: end: 20050429
  4. URBANYL [Concomitant]
     Route: 065
     Dates: start: 20050501
  5. OMEPRAZOLE [Concomitant]
     Indication: PRODUCT USED FOR UNKNOWN INDICATION
     Dosage: 20MG PER DAY
     Route: 065
     Dates: start: 20050520

REACTIONS (13)
  - CONJUNCTIVITIS [None]
  - PRURITUS [None]
  - SYMBLEPHARON [None]
  - ODYNOPHAGIA [None]
  - DRY EYE [None]
  - TONSILLITIS [None]
  - CORNEAL PERFORATION [None]
  - BLISTER [None]
  - VISUAL ACUITY REDUCED [None]
  - OEDEMA PERIPHERAL [None]
  - MACULE [None]
  - PHOTOPHOBIA [None]
  - STEVENS-JOHNSON SYNDROME [None]
